FAERS Safety Report 8566677-4 (Version None)
Quarter: 2012Q3

REPORT INFORMATION
  Report Type: 
  Country: None (occurrence: None)
  Receive Date: 20120803
  Receipt Date: 20120106
  Transmission Date: 20120928
  Serious: No
  Sender: FDA-Public Use
  Company Number: US-ABBOTT-12P-163-0890473-00

PATIENT
  Sex: Male
  Weight: 72.64 kg

DRUGS (1)
  1. NIASPAN [Suspect]
     Indication: HIGH DENSITY LIPOPROTEIN DECREASED
     Dosage: AT BEDTIME
     Dates: start: 20110701

REACTIONS (4)
  - LIBIDO DECREASED [None]
  - FLUSHING [None]
  - ABDOMINAL DISCOMFORT [None]
  - BURNING SENSATION [None]
